FAERS Safety Report 12497784 (Version 2)
Quarter: 2016Q3

REPORT INFORMATION
  Report Type: Spontaneous
  Country: US (occurrence: US)
  Receive Date: 20160625
  Receipt Date: 20160704
  Transmission Date: 20161109
  Serious: No
  Sender: FDA-Public Use
  Company Number: US-009507513-1606USA011315

PATIENT
  Sex: Female

DRUGS (1)
  1. NEXPLANON [Suspect]
     Active Substance: ETONOGESTREL
     Dosage: STRENGHT 68 MG 00052433001, 1 DF, THREE YEARS
     Route: 059

REACTIONS (3)
  - Device deployment issue [Unknown]
  - Device difficult to use [Unknown]
  - No adverse event [Unknown]
